FAERS Safety Report 6064579-9 (Version None)
Quarter: 2009Q1

REPORT INFORMATION
  Report Type: 
  Country: None (occurrence: None)
  Receive Date: 20090204
  Receipt Date: 20090130
  Transmission Date: 20090719
  Serious: Yes (Other)
  Sender: FDA-Public Use
  Company Number: B0555071A

PATIENT
  Age: 69 Year
  Sex: Male

DRUGS (1)
  1. VALTREX [Suspect]
     Indication: DRUG USE FOR UNKNOWN INDICATION
     Dosage: 1000MG THREE TIMES PER DAY
     Route: 048
     Dates: start: 20090115

REACTIONS (2)
  - CEREBRAL INFARCTION [None]
  - HALLUCINATION [None]
